FAERS Safety Report 24234703 (Version 1)
Quarter: 2024Q3

REPORT INFORMATION
  Report Type: Spontaneous
  Country: US (occurrence: None)
  Receive Date: 20240820
  Receipt Date: 20240820
  Transmission Date: 20241017
  Serious: Yes (Other)
  Sender: Public
  Company Number: None

PATIENT
  Age: 50 Year
  Sex: Female
  Weight: 82.8 kg

DRUGS (1)
  1. FERRLECIT [Suspect]
     Active Substance: SODIUM FERRIC GLUCONATE COMPLEX
     Dosage: OTHER FREQUENCY : ONCE;?
     Route: 042
     Dates: start: 20240810, end: 20240810

REACTIONS (9)
  - Infusion related reaction [None]
  - Defaecation urgency [None]
  - Urticaria [None]
  - Skin tightness [None]
  - Nausea [None]
  - Tremor [None]
  - Hyperhidrosis [None]
  - Abdominal pain [None]
  - Paraesthesia [None]

NARRATIVE: CASE EVENT DATE: 20240810
